FAERS Safety Report 5975557-X (Version None)
Quarter: 2008Q4

REPORT INFORMATION
  Report Type: 
  Country: None (occurrence: None)
  Receive Date: 20081202
  Receipt Date: 20081017
  Transmission Date: 20090506
  Serious: Yes (Other)
  Sender: FDA-Public Use
  Company Number: A0746333A

PATIENT
  Age: 57 Year
  Sex: Female

DRUGS (2)
  1. AUGMENTIN XR [Suspect]
     Dosage: 1000MG TWICE PER DAY
     Route: 048
     Dates: start: 20080630
  2. NO CONCURRENT MEDICATION [Concomitant]

REACTIONS (5)
  - BLOOD BILIRUBIN INCREASED [None]
  - JAUNDICE [None]
  - LIVER INJURY [None]
  - NAUSEA [None]
  - PRURITUS [None]
